FAERS Safety Report 24856258 (Version 1)
Quarter: 2025Q1

REPORT INFORMATION
  Report Type: Spontaneous
  Country: US (occurrence: US)
  Receive Date: 20250117
  Receipt Date: 20250117
  Transmission Date: 20250409
  Serious: Yes (Other)
  Sender: BAYER HEALTHCARE LLC
  Company Number: US-BAYER-2025A005852

PATIENT

DRUGS (3)
  1. ASPIRIN [Suspect]
     Active Substance: ASPIRIN
     Indication: Headache
     Dosage: UNK UNK, QD
     Route: 065
  2. ASPIRIN [Suspect]
     Active Substance: ASPIRIN
     Indication: Toothache
  3. ASPIRIN [Suspect]
     Active Substance: ASPIRIN
     Indication: Brain operation

REACTIONS (2)
  - Product use in unapproved indication [Unknown]
  - Epistaxis [Recovered/Resolved with Sequelae]
